FAERS Safety Report 9732977 (Version 3)
Quarter: 2015Q3

REPORT INFORMATION
  Report Type: Spontaneous
  Country: US (occurrence: US)
  Receive Date: 20131204
  Receipt Date: 20150803
  Transmission Date: 20151125
  Serious: No
  Sender: FDA-Public Use
  Company Number: US-GILEAD-2008-0019508

PATIENT
  Age: 81 Year
  Sex: Female
  Weight: 109.77 kg

DRUGS (10)
  1. LISINOPRIL. [Concomitant]
     Active Substance: LISINOPRIL
  2. CLONIDINE. [Concomitant]
     Active Substance: CLONIDINE
  3. CYMBALTA [Concomitant]
     Active Substance: DULOXETINE HYDROCHLORIDE
  4. LETAIRIS [Suspect]
     Active Substance: AMBRISENTAN
     Indication: PULMONARY ARTERIAL HYPERTENSION
     Dosage: TAKE AS DIRECTED
     Route: 048
     Dates: start: 20080820
  5. NORVASC [Concomitant]
     Active Substance: AMLODIPINE BESYLATE
  6. VYTORIN [Concomitant]
     Active Substance: EZETIMIBE\SIMVASTATIN
  7. ATENOLOL. [Concomitant]
     Active Substance: ATENOLOL
  8. ASPIRIN. [Concomitant]
     Active Substance: ASPIRIN
  9. ALLOPURINOL. [Concomitant]
     Active Substance: ALLOPURINOL
  10. VITAMIN C [Concomitant]
     Active Substance: ASCORBIC ACID

REACTIONS (4)
  - Pulmonary hypertension [Unknown]
  - Left ventricular hypertrophy [Unknown]
  - Dyspnoea [Unknown]
  - Wheezing [Unknown]

NARRATIVE: CASE EVENT DATE: 20081212
